FAERS Safety Report 9353559 (Version 3)
Quarter: 2013Q4

REPORT INFORMATION
  Report Type: Spontaneous
  Country: US (occurrence: US)
  Receive Date: 20130618
  Receipt Date: 20131028
  Transmission Date: 20140711
  Serious: Yes (Life-Threatening, Hospitalization, Other)
  Sender: FDA-Public Use
  Company Number: US-BAYER-2013-071219

PATIENT
  Age: 27 Year
  Sex: Female
  Weight: 66.21 kg

DRUGS (5)
  1. MIRENA [Suspect]
     Dosage: 20 MCG/24HR, CONT
     Route: 015
     Dates: start: 200805, end: 20120711
  2. IBUPROFEN [Concomitant]
  3. AMOXICILLIN [Concomitant]
  4. LAMISIL [Concomitant]
  5. LOESTRIN FE [Concomitant]

REACTIONS (12)
  - Uterine perforation [None]
  - Complication of device removal [None]
  - Device dislocation [None]
  - Abdominal pain lower [None]
  - Injury [None]
  - Pain [None]
  - General physical health deterioration [None]
  - Anxiety [None]
  - Anhedonia [None]
  - Infection [None]
  - Emotional distress [None]
  - Pelvic pain [None]
